FAERS Safety Report 26206192 (Version 1)
Quarter: 2025Q4

REPORT INFORMATION
  Report Type: Spontaneous
  Country: US (occurrence: US)
  Receive Date: 20251229
  Receipt Date: 20251229
  Transmission Date: 20260117
  Serious: Yes (Other)
  Sender: AMGEN
  Company Number: US-AMGEN-USASP2025253758

PATIENT

DRUGS (5)
  1. ROMOSOZUMAB [Suspect]
     Active Substance: ROMOSOZUMAB
     Indication: Osteoporosis
     Dosage: UNK
     Route: 065
  2. DENOSUMAB [Suspect]
     Active Substance: DENOSUMAB
     Indication: Osteoporosis
     Dosage: UNK
     Route: 065
  3. TERIPARATIDE [Concomitant]
     Active Substance: TERIPARATIDE
  4. ABALOPARATIDE [Concomitant]
     Active Substance: ABALOPARATIDE
  5. RALOXIFENE [Concomitant]
     Active Substance: RALOXIFENE

REACTIONS (2)
  - Periprosthetic fracture [Unknown]
  - Shoulder fracture [Unknown]
